FAERS Safety Report 21177907 (Version 1)
Quarter: 2022Q3

REPORT INFORMATION
  Report Type: Spontaneous
  Country: US (occurrence: US)
  Receive Date: 20220805
  Receipt Date: 20220805
  Transmission Date: 20221027
  Serious: Yes (Death, Other)
  Sender: FDA-Public Use
  Company Number: US-SA-SAC20220805000558

PATIENT
  Age: 77 Year
  Sex: Female

DRUGS (2)
  1. ZANTAC [Suspect]
     Active Substance: RANITIDINE HYDROCHLORIDE
     Indication: Gastrooesophageal reflux disease
     Dosage: 75 MG, FREQUENCY: PERIODS OF NON-USE (AT LEAST 3 MONTHS WITHOUT USE)
     Dates: start: 199801
  2. ZANTAC [Suspect]
     Active Substance: RANITIDINE HYDROCHLORIDE
     Indication: Dyspepsia
     Dosage: 150MG FREQUENCY: PERIODS OF NON-USE (AT LEAST 3 MONTHS WITHOUT USE)
     Dates: end: 201701

REACTIONS (3)
  - Breast cancer female [Fatal]
  - Renal cancer [Fatal]
  - Haematological malignancy [Fatal]

NARRATIVE: CASE EVENT DATE: 20150101
